FAERS Safety Report 23410472 (Version 3)
Quarter: 2024Q1

REPORT INFORMATION
  Report Type: Report from Study
  Country: CN (occurrence: CN)
  Receive Date: 20240117
  Receipt Date: 20240207
  Transmission Date: 20240410
  Serious: No
  Sender: FDA-Public Use
  Company Number: CN-PFIZER INC-PV202400005442

PATIENT
  Age: 85 Year
  Sex: Female

DRUGS (83)
  1. NIRMATRELVIR\RITONAVIR [Suspect]
     Active Substance: NIRMATRELVIR\RITONAVIR
     Dosage: [NIRMATRELVIR 300MG]/[RITONAVIR 100MG], Q12H
     Dates: start: 20220712, end: 20220717
  2. NIRMATRELVIR\RITONAVIR [Suspect]
     Active Substance: NIRMATRELVIR\RITONAVIR
     Dosage: [NIRMATRELVIR 300MG]/[RITONAVIR 100MG], Q12H
     Dates: start: 20220721, end: 20220725
  3. FLUPENTIXOL\MELITRACEN [Concomitant]
     Active Substance: FLUPENTIXOL\MELITRACEN
     Indication: Dementia Alzheimer^s type
     Dosage: UNK
     Route: 048
     Dates: start: 20220708, end: 20220712
  4. MEMANTINE HYDROCHLORIDE [Concomitant]
     Active Substance: MEMANTINE HYDROCHLORIDE
     Indication: Dementia Alzheimer^s type
     Dosage: UNK
     Route: 048
     Dates: start: 20220708, end: 20220712
  5. MEMANTINE HYDROCHLORIDE [Concomitant]
     Active Substance: MEMANTINE HYDROCHLORIDE
     Dosage: UNK, NASOGASTRIC
     Dates: start: 20220712, end: 20220721
  6. RABEPRAZOLE SODIUM [Concomitant]
     Active Substance: RABEPRAZOLE SODIUM
     Indication: Prophylaxis against gastrointestinal ulcer
     Dosage: UNK, ENTERIC COATED
     Route: 048
     Dates: start: 20220708, end: 20220712
  7. OXYGEN [Concomitant]
     Active Substance: OXYGEN
     Indication: COVID-19 treatment
     Dosage: UNK, OXYGEN SUPPLEMENTAL THERAPY
     Route: 055
     Dates: start: 20220708, end: 20220712
  8. THYMALFASIN [Concomitant]
     Active Substance: THYMALFASIN
     Indication: COVID-19 treatment
     Dosage: UNK
     Route: 058
     Dates: start: 20220708
  9. POTASSIUM CHLORIDE [Concomitant]
     Active Substance: POTASSIUM CHLORIDE
     Indication: Mineral supplementation
     Dosage: UNK
     Route: 048
     Dates: start: 20220708, end: 20220712
  10. HEPARIN CALCIUM [Concomitant]
     Active Substance: HEPARIN CALCIUM
     Indication: Anticoagulant therapy
     Dosage: UNK
     Route: 058
     Dates: start: 20220709, end: 20220721
  11. VALSARTAN [Concomitant]
     Active Substance: VALSARTAN
     Indication: Hypertension
     Dosage: UNK
     Route: 048
     Dates: start: 20220709, end: 20220712
  12. ENTERAL NUTRITIONAL SUSPENSION (TPF) [Concomitant]
     Indication: Nutritional supplementation
     Dosage: UNK, NASOGASTRIC
     Dates: start: 20220710, end: 20220712
  13. ENTERAL NUTRITIONAL SUSPENSION (TPF) [Concomitant]
     Dosage: UNK, NASOGASTRIC
     Dates: start: 20220719, end: 20220720
  14. POTASSIUM CHLORIDE [Concomitant]
     Active Substance: POTASSIUM CHLORIDE
     Indication: Mineral supplementation
     Dosage: UNK
     Route: 058
     Dates: start: 20220712, end: 20220712
  15. POTASSIUM CHLORIDE [Concomitant]
     Active Substance: POTASSIUM CHLORIDE
     Dosage: UNK
     Route: 042
     Dates: start: 20220722, end: 20220723
  16. CEFOPERAZONE SODIUM\SULBACTAM SODIUM [Concomitant]
     Active Substance: CEFOPERAZONE SODIUM\SULBACTAM SODIUM
     Indication: Anti-infective therapy
     Dosage: UNK
     Route: 042
     Dates: start: 20220712, end: 20220712
  17. CEFOPERAZONE SODIUM\SULBACTAM SODIUM [Concomitant]
     Active Substance: CEFOPERAZONE SODIUM\SULBACTAM SODIUM
     Dosage: UNK
     Route: 042
     Dates: start: 20220723, end: 20220807
  18. AMBROXOL HYDROCHLORIDE [Concomitant]
     Active Substance: AMBROXOL HYDROCHLORIDE
     Indication: Productive cough
     Dosage: UNK
     Route: 042
     Dates: start: 20220712, end: 20220728
  19. AMBROXOL HYDROCHLORIDE [Concomitant]
     Active Substance: AMBROXOL HYDROCHLORIDE
     Dosage: UNK
     Route: 042
     Dates: start: 20220728
  20. DYPHYLLINE [Concomitant]
     Active Substance: DYPHYLLINE
     Indication: Dyspnoea
     Dosage: UNK
     Route: 042
     Dates: start: 20220712, end: 20220716
  21. DYPHYLLINE [Concomitant]
     Active Substance: DYPHYLLINE
     Dosage: UNK
     Route: 042
     Dates: start: 20220715, end: 20220725
  22. ITOPRIDE HYDROCHLORIDE [Concomitant]
     Active Substance: ITOPRIDE HYDROCHLORIDE
     Indication: Productive cough
     Dosage: UNK, NASOGASTRIC
     Dates: start: 20220712, end: 20220720
  23. CLOSTRIDIUM BUTYRICUM SPORES STRAIN M-55 [Concomitant]
     Active Substance: CLOSTRIDIUM BUTYRICUM SPORES STRAIN M-55
     Indication: Dyspepsia
     Dosage: UNK, NASOGASTRIC
     Dates: start: 20220712, end: 20220812
  24. RECOMBINANT HUMAN INTERFERON ALFA 2B [Concomitant]
     Indication: COVID-19 treatment
     Dosage: UNK, SPRAY
     Route: 055
     Dates: start: 20220712, end: 20220717
  25. RECOMBINANT HUMAN INTERFERON ALFA 2B [Concomitant]
     Dosage: UNK, SPRAY
     Route: 055
     Dates: start: 20220717, end: 20220726
  26. MEROPENEM [Concomitant]
     Active Substance: MEROPENEM
     Indication: Anti-infective therapy
     Dosage: UNK
     Route: 042
     Dates: start: 20220712, end: 20220713
  27. MEROPENEM [Concomitant]
     Active Substance: MEROPENEM
     Dosage: UNK
     Route: 042
     Dates: start: 20220713, end: 20220723
  28. LINEZOLID [Concomitant]
     Active Substance: LINEZOLID
     Indication: Anti-infective therapy
     Dosage: UNK, NASOGASTRIC
     Dates: start: 20220712, end: 20220715
  29. LINEZOLID [Concomitant]
     Active Substance: LINEZOLID
     Dosage: UNK, NASOGASTRIC
     Dates: start: 20220728, end: 20220807
  30. OMEPRAZOLE SODIUM [Concomitant]
     Active Substance: OMEPRAZOLE SODIUM
     Indication: Prophylaxis
     Dosage: UNK
     Route: 042
     Dates: start: 20220712, end: 20220813
  31. FAT EMULSION, AMINO ACIDS (17) AND GLUCOSE (11%) [Concomitant]
     Indication: Nutritional supplementation
     Dosage: UNK
     Route: 042
     Dates: start: 20220712, end: 20220719
  32. VITAMINS NOS [Concomitant]
     Active Substance: VITAMINS
     Indication: Nutritional supplementation
     Dosage: UNK, MULTIVITAMIN FOR INJECTION(12)
     Route: 042
     Dates: start: 20220712, end: 20220716
  33. COMPOUND AMINO ACID INJECTION (18AA-III) [Concomitant]
     Indication: Nutritional supplementation
     Dosage: UNK
     Route: 042
     Dates: start: 20220712, end: 20220719
  34. COMPOUND AMINO ACID INJECTION (18AA-III) [Concomitant]
     Dosage: UNK
     Route: 042
     Dates: start: 20220719, end: 20220721
  35. ALANYL GLUTAMINE [Concomitant]
     Active Substance: ALANYL GLUTAMINE
     Indication: Nutritional supplementation
     Dosage: UNK
     Route: 042
     Dates: start: 20220712, end: 20220724
  36. ALANYL GLUTAMINE [Concomitant]
     Active Substance: ALANYL GLUTAMINE
     Dosage: UNK
     Route: 042
     Dates: start: 20220724, end: 20220807
  37. METRONIDAZOLE\SODIUM CHLORIDE [Concomitant]
     Active Substance: METRONIDAZOLE\SODIUM CHLORIDE
     Indication: Anti-infective therapy
     Dosage: UNK
     Route: 042
     Dates: start: 20220713, end: 20220719
  38. ALBUMIN HUMAN [Concomitant]
     Active Substance: ALBUMIN HUMAN
     Indication: Nutritional supplementation
     Dosage: UNK
     Route: 042
     Dates: start: 20220713, end: 20220715
  39. ALBUMIN HUMAN [Concomitant]
     Active Substance: ALBUMIN HUMAN
     Dosage: UNK
     Route: 042
     Dates: start: 20220721, end: 20220724
  40. ALBUMIN HUMAN [Concomitant]
     Active Substance: ALBUMIN HUMAN
     Dosage: UNK
     Route: 030
     Dates: start: 20220801, end: 20220811
  41. LACTULOSE [Concomitant]
     Active Substance: LACTULOSE
     Indication: Constipation
     Dosage: UNK, ORAL SOLUTION, NASOGASTRIC
     Dates: start: 20220618, end: 20220623
  42. LACTULOSE [Concomitant]
     Active Substance: LACTULOSE
     Indication: Laxative supportive care
     Dosage: UNK, NASOGASTRIC
     Dates: start: 20220714, end: 20220715
  43. RECOMBINANT HUMAN THROMBOPOIETIN [Concomitant]
     Active Substance: RECOMBINANT HUMAN THROMBOPOIETIN
     Indication: Platelet count increased
     Dosage: UNK
     Route: 058
     Dates: start: 20220715, end: 20220718
  44. VANCOMYCIN HYDROCHLORIDE [Concomitant]
     Active Substance: VANCOMYCIN HYDROCHLORIDE
     Indication: Anti-infective therapy
     Dosage: UNK
     Route: 042
     Dates: start: 20220715, end: 20220724
  45. VANCOMYCIN HYDROCHLORIDE [Concomitant]
     Active Substance: VANCOMYCIN HYDROCHLORIDE
     Dosage: UNK
     Route: 042
     Dates: start: 20220725, end: 20220726
  46. HUMAN IMMUNOGLOBULIN G [Concomitant]
     Active Substance: HUMAN IMMUNOGLOBULIN G
     Indication: COVID-19 treatment
     Dosage: UNK
     Route: 042
     Dates: start: 20220715, end: 20220719
  47. LEVALBUTEROL HYDROCHLORIDE [Concomitant]
     Active Substance: LEVALBUTEROL HYDROCHLORIDE
     Indication: Productive cough
     Dosage: UNK, NEBULISER SOLUTION SPRAY
     Dates: start: 20220716
  48. FISH OIL [Concomitant]
     Active Substance: FISH OIL
     Indication: Nutritional supplementation
     Dosage: UNK, W-3 FISH OIL FAT EMULSION
     Route: 042
     Dates: start: 20220716, end: 20220807
  49. MULTI-TRACE ELEMENTS INJECTION (II) [Concomitant]
     Indication: Nutritional supplementation
     Dosage: UNK, UNKNOWN INGREDIENTS
     Route: 042
     Dates: start: 20220716, end: 20220719
  50. ACETYLCYSTEINE [ACETYLCYSTEINE SODIUM] [Concomitant]
     Indication: Productive cough
     Dosage: UNK, SOLUTION FOR INHALATION, SPRAY
     Route: 055
     Dates: start: 20220716
  51. MAGNESIUM SULFATE [Concomitant]
     Active Substance: MAGNESIUM SULFATE\MAGNESIUM SULFATE HEPTAHYDRATE
     Indication: Nutritional supplementation
     Dosage: UNK
     Route: 042
     Dates: start: 20220716, end: 20220719
  52. METOCLOPRAMIDE HYDROCHLORIDE [Concomitant]
     Active Substance: METOCLOPRAMIDE HYDROCHLORIDE
     Indication: Antiemetic supportive care
     Dosage: UNK
     Route: 030
     Dates: start: 20220720, end: 20220723
  53. METOCLOPRAMIDE HYDROCHLORIDE [Concomitant]
     Active Substance: METOCLOPRAMIDE HYDROCHLORIDE
     Dosage: UNK
     Route: 030
     Dates: start: 20220728, end: 20220731
  54. DOMPERIDONE [Concomitant]
     Active Substance: DOMPERIDONE
     Indication: Dyspepsia
     Dosage: UNK, NASOGASTRIC
     Dates: start: 20220720, end: 20220721
  55. NADROPARIN CALCIUM [Concomitant]
     Active Substance: NADROPARIN CALCIUM
     Indication: Anticoagulant therapy
     Dosage: UNK
     Route: 058
     Dates: start: 20220721, end: 20220812
  56. STRUCTURAL FAT EMULSION INJECTION (C6-24) [Concomitant]
     Indication: Nutritional supplementation
     Dosage: UNK
     Route: 042
     Dates: start: 20220719, end: 20220721
  57. STRUCTURAL FAT EMULSION INJECTION (C6-24) [Concomitant]
     Dosage: UNK
     Route: 042
     Dates: start: 20220721, end: 20220724
  58. STRUCTURAL FAT EMULSION INJECTION (C6-24) [Concomitant]
     Dosage: UNK
     Route: 042
     Dates: start: 20220724, end: 20220807
  59. COMPOUND OVOFOETI [Concomitant]
     Indication: Anaemia
     Dosage: UNK, INGREDIENTS NOT SPECIFIED, NASOGASTRIC
     Dates: start: 20220727, end: 20220728
  60. NEOSTIGMINE METHYLSULFATE [Concomitant]
     Active Substance: NEOSTIGMINE METHYLSULFATE
     Indication: Flatulence
     Dosage: UNK
     Route: 030
     Dates: start: 20220723, end: 20220725
  61. FOLIC ACID [Concomitant]
     Active Substance: FOLIC ACID
     Indication: Anaemia
     Dosage: UNK, NASOGASTRIC
     Dates: start: 20220727, end: 20220728
  62. FOLIC ACID [Concomitant]
     Active Substance: FOLIC ACID
     Dosage: UNK, NASOGASTRIC
     Dates: start: 20220801, end: 20220812
  63. CASPOFUNGIN ACETATE [Concomitant]
     Active Substance: CASPOFUNGIN ACETATE
     Indication: Antifungal treatment
     Dosage: UNK
     Route: 042
     Dates: start: 20220728
  64. IRON SUCROSE [Concomitant]
     Active Substance: IRON SUCROSE
     Indication: Iron deficiency
     Dosage: UNK
     Dates: start: 20220728, end: 20220804
  65. AMIKACIN SULFATE [Concomitant]
     Active Substance: AMIKACIN SULFATE
     Indication: Anti-infective therapy
     Dosage: UNK
     Route: 042
     Dates: start: 20220807
  66. SOMATOSTATIN [Concomitant]
     Active Substance: SOMATOSTATIN
     Indication: Haemostasis
     Dosage: UNK
     Route: 042
     Dates: start: 20220807
  67. AVIBACTAM SODIUM\CEFTAZIDIME [Concomitant]
     Active Substance: AVIBACTAM SODIUM\CEFTAZIDIME
     Indication: Anti-infective therapy
     Dosage: UNK
     Route: 042
     Dates: start: 20220808
  68. TERLIPRESSIN [Concomitant]
     Active Substance: TERLIPRESSIN
     Indication: Haemostasis
     Dosage: UNK
     Route: 042
     Dates: start: 20220812, end: 20220814
  69. PANTOPRAZOLE SODIUM [Concomitant]
     Active Substance: PANTOPRAZOLE SODIUM
     Indication: Prophylaxis against gastrointestinal ulcer
     Dosage: UNK
     Dates: start: 20220807
  70. IBUPROFEN [Concomitant]
     Active Substance: IBUPROFEN
     Indication: Antipyresis
     Dosage: UNK, SUSPENSION
     Route: 048
     Dates: start: 20220612
  71. DESLANOSIDE [Concomitant]
     Active Substance: DESLANOSIDE
     Indication: Cardiac disorder
     Dosage: UNK
     Route: 042
     Dates: start: 20220612
  72. ROCURONIUM BROMIDE [Concomitant]
     Active Substance: ROCURONIUM BROMIDE
     Indication: Hypotonia
     Dosage: UNK
     Dates: start: 20220612
  73. MIDAZOLAM [Concomitant]
     Active Substance: MIDAZOLAM
     Indication: Sedation
     Dosage: UNK
     Route: 042
     Dates: start: 20220612
  74. REMIFENTANIL HYDROCHLORIDE [Concomitant]
     Active Substance: REMIFENTANIL HYDROCHLORIDE
     Indication: Injection
     Dosage: UNK
     Route: 042
     Dates: start: 20220612
  75. PROPOFOL [Concomitant]
     Active Substance: PROPOFOL
     Indication: Sedation
     Dosage: UNK
     Route: 042
     Dates: start: 20220612
  76. AMIODARONE HYDROCHLORIDE [Concomitant]
     Active Substance: AMIODARONE HYDROCHLORIDE
     Indication: Arrhythmia
     Dosage: UNK
     Route: 042
     Dates: start: 20220612
  77. TORSEMIDE [Concomitant]
     Active Substance: TORSEMIDE
     Indication: Antipyresis
     Dosage: UNK, INGREDIENTS NOT SPECIFIED
     Route: 042
     Dates: start: 20220612
  78. NOREPINEPHRINE BITARTRATE [Concomitant]
     Active Substance: NOREPINEPHRINE BITARTRATE
     Indication: Blood pressure measurement
     Dosage: UNK
     Route: 042
     Dates: start: 20220612
  79. HETASTARCH [Concomitant]
     Active Substance: HETASTARCH
     Indication: Blood pressure increased
     Dosage: UNK
     Route: 042
     Dates: start: 20220612
  80. CALCIUM POLYSTYRENE SULFONATE [Concomitant]
     Active Substance: CALCIUM POLYSTYRENE SULFONATE
     Indication: Blood potassium decreased
     Dosage: UNK, POWDER, NASOGASTRIC
     Dates: start: 20220612
  81. NAFAMOSTAT MESYLATE [Concomitant]
     Active Substance: NAFAMOSTAT MESYLATE
     Indication: Anticoagulant therapy
     Dosage: UNK
     Dates: start: 20220613
  82. SHI YI WEI SHEN QI [Concomitant]
     Indication: Spleen disorder
     Dosage: UNK, SHI YI WEI SHEN QI PIAN (INGREDIENTS NOT SPECIFIED), NASOGASTRIC
     Dates: start: 20220810
  83. HEMOCOAGULASE [Concomitant]
     Indication: Haemostasis
     Dosage: UNK
     Route: 042
     Dates: start: 20220812

REACTIONS (1)
  - Overdose [Unknown]
